FAERS Safety Report 9761669 (Version 2)
Quarter: 2013Q4

REPORT INFORMATION
  Report Type: Spontaneous
  Country: US (occurrence: US)
  Receive Date: 20131216
  Receipt Date: 20131216
  Transmission Date: 20140711
  Serious: Yes (Life-Threatening)
  Sender: FDA-Public Use
  Company Number: US-ACTELION-A-US2013-92030

PATIENT
  Age: 60 Year
  Sex: Female

DRUGS (1)
  1. OPSUMIT [Suspect]
     Indication: PULMONARY ARTERIAL HYPERTENSION
     Dosage: 10 MG , QD, 1 TABLET
     Route: 048
     Dates: start: 20131126, end: 20131127

REACTIONS (2)
  - Blood glucose decreased [Recovered/Resolved]
  - Hypotension [Recovered/Resolved]
